FAERS Safety Report 6652546-3 (Version None)
Quarter: 2010Q1

REPORT INFORMATION
  Report Type: 
  Country: None (occurrence: None)
  Receive Date: 20100325
  Receipt Date: 20100325
  Transmission Date: 20100710
  Serious: Yes (Hospitalization, Other)
  Sender: FDA-Public Use
  Company Number: None

PATIENT
  Age: 27 Year
  Sex: Female
  Weight: 68.0396 kg

DRUGS (1)
  1. MIRENA [Suspect]
     Indication: CONTRACEPTION
     Dosage: MIRENA INTRAUTERINE
     Route: 015
     Dates: start: 20080714, end: 20100323

REACTIONS (6)
  - ABDOMINAL PAIN [None]
  - DRUG EXPOSURE VIA BREAST MILK [None]
  - DRUG PRESCRIBING ERROR [None]
  - OVARIAN CYST [None]
  - PRODUCT LABEL ISSUE [None]
  - UTERINE HAEMORRHAGE [None]
